FAERS Safety Report 21658231 (Version 1)
Quarter: 2022Q4

REPORT INFORMATION
  Report Type: Spontaneous
  Country: US (occurrence: None)
  Receive Date: 20221128
  Receipt Date: 20221128
  Transmission Date: 20230112
  Serious: Yes (Life-Threatening, Other)
  Sender: FDA-Public Use
  Company Number: None

PATIENT
  Age: 66 Year
  Sex: 0
  Weight: 44.1 kg

DRUGS (6)
  1. LIDOCAINE [Suspect]
     Active Substance: LIDOCAINE
  2. Nature thyroid Prednisone [Concomitant]
  3. vitamins B [Concomitant]
  4. VITAMINS C [Concomitant]
  5. Probiotics Magnesium [Concomitant]
  6. alpha lipoic acid multivitamin [Concomitant]

REACTIONS (14)
  - Muscular weakness [None]
  - Hypoaesthesia [None]
  - Gait disturbance [None]
  - Gait disturbance [None]
  - Dyskinesia [None]
  - Muscle twitching [None]
  - Electric shock sensation [None]
  - Tonic clonic movements [None]
  - Dyspnoea [None]
  - Pain [None]
  - Mass [None]
  - Dizziness [None]
  - Rash [None]
  - Localised infection [None]

NARRATIVE: CASE EVENT DATE: 20221012
